FAERS Safety Report 14481011 (Version 1)
Quarter: 2018Q1

REPORT INFORMATION
  Report Type: Spontaneous
  Country: US (occurrence: US)
  Receive Date: 20180202
  Receipt Date: 20180202
  Transmission Date: 20180509
  Serious: Yes (Other)
  Sender: FDA-Public Use
  Company Number: US-SA-2018SA023955

PATIENT
  Age: 67 Year
  Sex: Female

DRUGS (4)
  1. SOLOSTAR [Suspect]
     Active Substance: DEVICE
     Dates: start: 1998
  2. LANTUS SOLOSTAR [Suspect]
     Active Substance: INSULIN GLARGINE
     Dosage: DOSE:50 UNIT(S)
     Route: 051
     Dates: start: 1998
  3. SOLOSTAR [Suspect]
     Active Substance: DEVICE
  4. LANTUS SOLOSTAR [Suspect]
     Active Substance: INSULIN GLARGINE
     Dosage: DOSE:64 UNIT(S)
     Route: 051

REACTIONS (5)
  - Cardiovascular insufficiency [Unknown]
  - Eye disorder [Unknown]
  - Unevaluable event [Unknown]
  - Eye infection bacterial [Unknown]
  - Weight increased [Unknown]
